FAERS Safety Report 6604393-6 (Version None)
Quarter: 2010Q1

REPORT INFORMATION
  Report Type: 
  Country: None (occurrence: None)
  Receive Date: 20100226
  Receipt Date: 20090916
  Transmission Date: 20100710
  Serious: Yes (Other)
  Sender: FDA-Public Use
  Company Number: A0808088A

PATIENT
  Age: 60 Year
  Sex: Male

DRUGS (4)
  1. LAMICTAL CD [Suspect]
     Dosage: 25MG PER DAY
     Route: 048
     Dates: start: 20090901
  2. SEROQUEL [Concomitant]
  3. LITHIUM [Concomitant]
  4. ZETIA [Concomitant]

REACTIONS (1)
  - HEPATIC ENZYME INCREASED [None]
